FAERS Safety Report 13340540 (Version 1)
Quarter: 2017Q1

REPORT INFORMATION
  Report Type: Spontaneous
  Country: US (occurrence: US)
  Receive Date: 20170316
  Receipt Date: 20170316
  Transmission Date: 20170428
  Serious: No
  Sender: FDA-Public Use
  Company Number: US-TEVA-747792ACC

PATIENT
  Sex: Female

DRUGS (4)
  1. GENERIC PROZAC [Concomitant]
     Active Substance: FLUOXETINE HYDROCHLORIDE
  2. VERAPAMIL [Concomitant]
     Active Substance: VERAPAMIL HYDROCHLORIDE
  3. COPAXONE [Suspect]
     Active Substance: GLATIRAMER ACETATE
     Indication: MULTIPLE SCLEROSIS
     Route: 058
  4. ESTRACE [Concomitant]
     Active Substance: ESTRADIOL

REACTIONS (1)
  - Nuclear magnetic resonance imaging abnormal [Unknown]
